FAERS Safety Report 8144192-X (Version None)
Quarter: 2012Q1

REPORT INFORMATION
  Report Type: 
  Country: None (occurrence: None)
  Receive Date: 20120217
  Receipt Date: 20120213
  Transmission Date: 20120608
  Serious: Yes (Other)
  Sender: FDA-Public Use
  Company Number: JP-B.I. PHARMACEUTICALS,INC./RIDGEFIELD-2012-BP-02104NB

PATIENT
  Age: 33 Year
  Sex: Male

DRUGS (6)
  1. MEILAX [Concomitant]
     Dosage: 1 MG
     Route: 048
  2. ESTAZOLAM [Concomitant]
     Dosage: 2 MG
     Route: 048
  3. LENDORMIN [Concomitant]
     Dosage: 0.25 MG
     Route: 048
  4. CYMBALTA [Concomitant]
     Dosage: 20 MG
     Route: 048
  5. DEPAS [Concomitant]
     Dosage: 1 MG
     Route: 048
  6. TELMISARTAN/AMLODIPINE [Suspect]
     Indication: HYPERTENSION
     Route: 048
     Dates: start: 20110311

REACTIONS (2)
  - OVERDOSE [None]
  - BLOOD PRESSURE DECREASED [None]
